FAERS Safety Report 6474403-8 (Version None)
Quarter: 2009Q4

REPORT INFORMATION
  Report Type: 
  Country: None (occurrence: None)
  Receive Date: 20091204
  Receipt Date: 20091124
  Transmission Date: 20100525
  Serious: Yes (Other)
  Sender: FDA-Public Use
  Company Number: US-ABBOTT-09P-163-0610678-00

PATIENT
  Weight: 74.91 kg

DRUGS (17)
  1. BIAXIN [Suspect]
     Indication: BRONCHITIS
     Dates: start: 19970101
  2. RAMIPRIL [Concomitant]
     Indication: DRUG USE FOR UNKNOWN INDICATION
  3. LEVEMIR [Concomitant]
     Indication: DRUG USE FOR UNKNOWN INDICATION
     Dates: start: 20091001
  4. BYETTA [Concomitant]
     Indication: DRUG USE FOR UNKNOWN INDICATION
     Dates: start: 20090901
  5. ELAVIL [Concomitant]
     Indication: DRUG USE FOR UNKNOWN INDICATION
  6. NASONEX [Concomitant]
     Indication: DRUG USE FOR UNKNOWN INDICATION
  7. ASPIRIN [Concomitant]
     Indication: DRUG USE FOR UNKNOWN INDICATION
  8. VALIUM [Concomitant]
     Indication: DRUG USE FOR UNKNOWN INDICATION
  9. FOLIC ACID [Concomitant]
     Indication: DRUG USE FOR UNKNOWN INDICATION
  10. DIURETIC [Concomitant]
     Indication: DRUG USE FOR UNKNOWN INDICATION
  11. CLARITIN [Concomitant]
     Indication: DRUG USE FOR UNKNOWN INDICATION
  12. PRILOSEC [Concomitant]
     Indication: DRUG USE FOR UNKNOWN INDICATION
  13. SINGULAIR [Concomitant]
     Indication: DRUG USE FOR UNKNOWN INDICATION
  14. SYNTHROID [Concomitant]
     Indication: DRUG USE FOR UNKNOWN INDICATION
     Dates: start: 19830101
  15. ZETIA [Concomitant]
     Indication: DRUG USE FOR UNKNOWN INDICATION
  16. ZOCOR [Concomitant]
     Indication: DRUG USE FOR UNKNOWN INDICATION
  17. FISH OIL [Concomitant]
     Indication: DRUG USE FOR UNKNOWN INDICATION

REACTIONS (3)
  - BLOOD GLUCOSE DECREASED [None]
  - DIZZINESS [None]
  - HYPOTENSION [None]
